FAERS Safety Report 8419190-9 (Version None)
Quarter: 2012Q2

REPORT INFORMATION
  Report Type: 
  Country: None (occurrence: None)
  Receive Date: 20120530
  Receipt Date: 20120507
  Transmission Date: 20120825
  Serious: Yes (Life-Threatening, Hospitalization, Other)
  Sender: FDA-Public Use
  Company Number: 2012P1032088

PATIENT
  Age: 84 Year
  Sex: Female

DRUGS (4)
  1. AMLODIPINE [Concomitant]
  2. ASPIRIN [Concomitant]
  3. SIMVASTATIN [Concomitant]
  4. DIGOXIN [Suspect]

REACTIONS (5)
  - MUSCULAR WEAKNESS [None]
  - RHABDOMYOLYSIS [None]
  - GENERAL PHYSICAL HEALTH DETERIORATION [None]
  - RENAL FAILURE ACUTE [None]
  - LISTLESS [None]
